FAERS Safety Report 23724905 (Version 3)
Quarter: 2024Q3

REPORT INFORMATION
  Report Type: Report from Study
  Country: US (occurrence: US)
  Receive Date: 20240410
  Receipt Date: 20240717
  Transmission Date: 20241017
  Serious: Yes (Other)
  Sender: CSL BEHRING
  Company Number: US-BEH-2024170315

PATIENT

DRUGS (2)
  1. HUMAN IMMUNOGLOBULIN G [Suspect]
     Active Substance: HUMAN IMMUNOGLOBULIN G
     Indication: Bruton^s agammaglobulinaemia
     Route: 042
  2. HUMAN IMMUNOGLOBULIN G [Suspect]
     Active Substance: HUMAN IMMUNOGLOBULIN G
     Indication: Bruton^s agammaglobulinaemia
     Route: 058

REACTIONS (6)
  - Febrile neutropenia [Unknown]
  - Blood immunoglobulin G decreased [Unknown]
  - Viral upper respiratory tract infection [Unknown]
  - Pyrexia [Unknown]
  - Therapy interrupted [Unknown]
  - Product availability issue [Unknown]
